FAERS Safety Report 8112487-1 (Version None)
Quarter: 2012Q1

REPORT INFORMATION
  Report Type: 
  Country: None (occurrence: None)
  Receive Date: 20120203
  Receipt Date: 20120131
  Transmission Date: 20120608
  Serious: Yes (Other)
  Sender: FDA-Public Use
  Company Number: US-ROCHE-1030284

PATIENT
  Sex: Male
  Weight: 68.1 kg

DRUGS (4)
  1. SOTRET [Suspect]
     Indication: ACNE
     Dates: start: 19990101, end: 20020101
  2. ACCUTANE [Suspect]
     Indication: ACNE
     Dates: start: 19990101, end: 20020101
  3. AMNESTEEM [Suspect]
     Indication: ACNE
     Dates: start: 19990101, end: 20020101
  4. CLARAVIS [Suspect]
     Indication: ACNE
     Dates: start: 19990101, end: 20020101

REACTIONS (5)
  - INFLAMMATORY BOWEL DISEASE [None]
  - CHEILITIS [None]
  - DEPRESSION [None]
  - IRRITABLE BOWEL SYNDROME [None]
  - ANXIETY [None]
